FAERS Safety Report 5179310-9 (Version None)
Quarter: 2006Q4

REPORT INFORMATION
  Report Type: 
  Country: None (occurrence: None)
  Receive Date: 20061219
  Receipt Date: 20061215
  Transmission Date: 20070319
  Serious: Yes (Other)
  Sender: FDA-Public Use
  Company Number: US-GLAXOSMITHKLINE-A0631746A

PATIENT
  Sex: Female

DRUGS (3)
  1. LOTRONEX [Suspect]
     Indication: IRRITABLE BOWEL SYNDROME
     Route: 048
  2. CIPRO [Suspect]
     Indication: WOUND INFECTION
  3. CLINDAMYCIN [Suspect]
     Indication: WOUND INFECTION

REACTIONS (1)
  - CLOSTRIDIAL INFECTION [None]
